FAERS Safety Report 22622015 (Version 2)
Quarter: 2025Q2

REPORT INFORMATION
  Report Type: Spontaneous
  Country: AU (occurrence: AU)
  Receive Date: 20230620
  Receipt Date: 20250623
  Transmission Date: 20250716
  Serious: Yes (Other)
  Sender: ORGANON
  Company Number: AU-ORGANON-O2306AUS002338

PATIENT
  Age: 35 Year
  Sex: Female

DRUGS (8)
  1. MIRTAZAPINE [Suspect]
     Active Substance: MIRTAZAPINE
  2. CIPROFLOXACIN HYDROCHLORIDE [Suspect]
     Active Substance: CIPROFLOXACIN HYDROCHLORIDE
     Route: 042
  3. HYRIMOZ [Suspect]
     Active Substance: ADALIMUMAB-ADAZ
  4. ACETAMINOPHEN\CODEINE PHOSPHATE [Suspect]
     Active Substance: ACETAMINOPHEN\CODEINE PHOSPHATE
  5. LOPERAMIDE HYDROCHLORIDE [Suspect]
     Active Substance: LOPERAMIDE HYDROCHLORIDE
  6. OXYCODONE [Suspect]
     Active Substance: OXYCODONE
  7. PANTOPRAZOLE [Suspect]
     Active Substance: PANTOPRAZOLE
  8. METHYLCOBALAMIN [Suspect]
     Active Substance: METHYLCOBALAMIN

REACTIONS (14)
  - Anal abscess [Unknown]
  - Colitis [Unknown]
  - Small intestinal obstruction [Unknown]
  - Affective disorder [Unknown]
  - Anal fistula [Unknown]
  - Diarrhoea [Unknown]
  - Discharge [Unknown]
  - Dysmenorrhoea [Unknown]
  - Dysplasia [Unknown]
  - Female genital tract fistula [Unknown]
  - Gastrointestinal stoma output increased [Unknown]
  - Hernia [Unknown]
  - Proctalgia [Unknown]
  - Stress [Unknown]
